FAERS Safety Report 6108447-2 (Version None)
Quarter: 2009Q1

REPORT INFORMATION
  Report Type: 
  Country: None (occurrence: None)
  Receive Date: 20090309
  Receipt Date: 20090303
  Transmission Date: 20090719
  Serious: Yes (Other)
  Sender: FDA-Public Use
  Company Number: DE-ROXANE LABORATORIES, INC.-2009-RO-00201RO

PATIENT
  Age: 82 Year
  Sex: Female

DRUGS (2)
  1. AMLODIPINE [Suspect]
  2. METHYLPREDNISOLONE 4MG TAB [Concomitant]
     Indication: LEUKOCYTOCLASTIC VASCULITIS

REACTIONS (1)
  - LEUKOCYTOCLASTIC VASCULITIS [None]
